FAERS Safety Report 21951756 (Version 1)
Quarter: 2023Q1

REPORT INFORMATION
  Report Type: Spontaneous
  Country: US (occurrence: None)
  Receive Date: 20230203
  Receipt Date: 20230203
  Transmission Date: 20230418
  Serious: Yes (Life-Threatening, Other)
  Sender: FDA-Public Use
  Company Number: None

PATIENT
  Age: 60 Year
  Sex: Male
  Weight: 92.7 kg

DRUGS (1)
  1. ENBREL [Suspect]
     Active Substance: ETANERCEPT
     Indication: Psoriatic arthropathy
     Dosage: OTHER FREQUENCY : TWICE WEEKLY;?
     Route: 058

REACTIONS (3)
  - Intervertebral discitis [None]
  - Squamous cell carcinoma of skin [None]
  - Chronic myeloid leukaemia [None]

NARRATIVE: CASE EVENT DATE: 20230203
